FAERS Safety Report 4490531-0 (Version None)
Quarter: 2004Q4

REPORT INFORMATION
  Report Type: 
  Country: None (occurrence: None)
  Receive Date: 20041028
  Receipt Date: 20041014
  Transmission Date: 20050328
  Serious: Yes (Other)
  Sender: FDA-Public Use
  Company Number: K200401624

PATIENT
  Age: 14 Year
  Sex: Male

DRUGS (1)
  1. EPIPEN [Suspect]
     Dosage: 0.3 MG, SINGLE
     Dates: start: 20040506, end: 20040506

REACTIONS (5)
  - ACCIDENTAL NEEDLE STICK [None]
  - INJECTION SITE ANAESTHESIA [None]
  - INJECTION SITE DISCOLOURATION [None]
  - INJECTION SITE STINGING [None]
  - POOR PERIPHERAL CIRCULATION [None]
